FAERS Safety Report 19569964 (Version 4)
Quarter: 2021Q3

REPORT INFORMATION
  Report Type: Spontaneous
  Country: DE (occurrence: DE)
  Receive Date: 20210715
  Receipt Date: 20210817
  Transmission Date: 20211014
  Serious: Yes (Death, Hospitalization, Other)
  Sender: FDA-Public Use
  Company Number: DE-PFIZER INC-2021846638

PATIENT
  Age: 93 Year
  Sex: Female
  Weight: 42 kg

DRUGS (8)
  1. SUPRARENIN [Suspect]
     Active Substance: EPINEPHRINE
     Dosage: 1 MILLIGRAM, TID
     Route: 065
  2. AMIODARONE [Suspect]
     Active Substance: AMIODARONE
     Dosage: UNK (INTRAVENOUS INFUSION)
     Route: 065
  3. PANTOZOL [Suspect]
     Active Substance: PANTOPRAZOLE SODIUM
     Dosage: 40 MILLIGRAM (INTRAVENOUS INFUSION)
     Route: 065
  4. MIDAZOLAM HYDROCHLORIDE. [Suspect]
     Active Substance: MIDAZOLAM HYDROCHLORIDE
     Indication: ANAESTHESIA
     Dosage: 1 MILLIGRAM (PRE?FILLED SYRINGE)
     Route: 042
  5. UNACID [SULTAMICILLIN TOSILATE] [Concomitant]
     Dosage: 3 GRAM
     Route: 042
  6. TRANEXAMIC ACID. [Concomitant]
     Active Substance: TRANEXAMIC ACID
     Dosage: 1000 MILLIGRAM, QD
  7. S?KETAMINE [Suspect]
     Active Substance: ESKETAMINE
     Indication: ANAESTHESIA
     Dosage: UNK
     Route: 065
  8. ADRENALIN [EPINEPHRINE HYDROCHLORIDE] [Suspect]
     Active Substance: EPINEPHRINE HYDROCHLORIDE
     Dosage: 10 MICROGRAM, TID
     Route: 065

REACTIONS (8)
  - Cardiac arrest [Fatal]
  - Hepatic failure [Recovered/Resolved]
  - Coagulopathy [Recovered/Resolved]
  - Anaemia [Recovered/Resolved]
  - Abdominal distension [Recovered/Resolved]
  - Blood count abnormal [Recovered/Resolved]
  - Dysphonia [Recovered/Resolved]
  - Poisoning [Recovered/Resolved]

NARRATIVE: CASE EVENT DATE: 20190802
